FAERS Safety Report 7329026-5 (Version None)
Quarter: 2011Q1

REPORT INFORMATION
  Report Type: 
  Country: None (occurrence: None)
  Receive Date: 20110303
  Receipt Date: 20110223
  Transmission Date: 20110831
  Serious: Yes (Other)
  Sender: FDA-Public Use
  Company Number: US-AMGEN-KDL444345

PATIENT
  Age: 88 Year
  Sex: Male

DRUGS (4)
  1. PROCRIT [Suspect]
     Indication: ANAEMIA
     Dosage: UNK UNK, UNK
     Route: 058
     Dates: start: 20100801, end: 20100901
  2. HYDROCHLOROTHIAZIDE [Concomitant]
     Dosage: 25 MG, QD
     Route: 048
     Dates: start: 20050101
  3. VALSARTAN [Concomitant]
     Dosage: 320 MG, QD
     Route: 048
     Dates: start: 20080801
  4. ROSUVASTATIN CALCIUM [Concomitant]
     Dosage: 5 MG, QD
     Route: 048

REACTIONS (1)
  - VEIN DISORDER [None]
